FAERS Safety Report 13399784 (Version 1)
Quarter: 2017Q2

REPORT INFORMATION
  Report Type: Spontaneous
  Country: US (occurrence: US)
  Receive Date: 20170404
  Receipt Date: 20170404
  Transmission Date: 20170830
  Serious: No
  Sender: FDA-Public Use
  Company Number: None

PATIENT

DRUGS (2)
  1. MEMANTINE HCL [Suspect]
     Active Substance: MEMANTINE
  2. VALSARTAN. [Suspect]
     Active Substance: VALSARTAN

REACTIONS (1)
  - Product label on wrong product [None]
